FAERS Safety Report 6108680-X (Version None)
Quarter: 2009Q1

REPORT INFORMATION
  Report Type: 
  Country: None (occurrence: None)
  Receive Date: 20090305
  Receipt Date: 20090218
  Transmission Date: 20090719
  Serious: Yes (Life-Threatening)
  Sender: FDA-Public Use
  Company Number: 2009000224

PATIENT
  Age: 64 Year
  Sex: Female
  Weight: 52 kg

DRUGS (9)
  1. ERLOTINIB                  (TABLET) (ERLOTINIB) [Suspect]
     Indication: LUNG ADENOCARCINOMA
     Dosage: (150 MG, QD), ORAL
     Route: 048
     Dates: start: 20080917, end: 20081007
  2. BETAMETHASONE [Concomitant]
  3. CANDESARTAN CILEXETIL [Concomitant]
  4. GABAPEN [Concomitant]
  5. ZONISAMIDE [Concomitant]
  6. LANSOPRAZOLE [Concomitant]
  7. PAXIL [Concomitant]
  8. PHENYTOIN [Concomitant]
  9. MAGNESIUM OXIDE (MAGNESIUM OXIDE) [Concomitant]

REACTIONS (1)
  - INFLAMMATORY CARCINOMA OF THE BREAST [None]
